FAERS Safety Report 10680601 (Version 1)
Quarter: 2014Q4

REPORT INFORMATION
  Report Type: Spontaneous
  Country: US (occurrence: US)
  Receive Date: 20141229
  Receipt Date: 20141229
  Transmission Date: 20150529
  Serious: No
  Sender: FDA-Public Use
  Company Number: US-SA-2014SA088488

PATIENT
  Sex: Male

DRUGS (23)
  1. FENOFIBRATE. [Concomitant]
     Active Substance: FENOFIBRATE
  2. FUROSEMIDE. [Concomitant]
     Active Substance: FUROSEMIDE
  3. LANSOPRAZOLE. [Concomitant]
     Active Substance: LANSOPRAZOLE
  4. PLAVIX [Suspect]
     Active Substance: CLOPIDOGREL BISULFATE
     Indication: PRODUCT USED FOR UNKNOWN INDICATION
     Route: 048
  5. WARFARIN [Concomitant]
     Active Substance: WARFARIN
     Dosage: 3 MG (SATURDAY AND SUNDAY) AND 4 MG (MONDAY, WEDNESDAY, AND FRIDAY).
  6. FERROUS SULFATE [Concomitant]
     Active Substance: FERROUS SULFATE\FERROUS SULFATE, DRIED
  7. LANTUS [Concomitant]
     Active Substance: INSULIN GLARGINE
     Dosage: DOSE:20 UNIT(S)
  8. LYRICA [Concomitant]
     Active Substance: PREGABALIN
  9. TIZANIDINE (TIZANIDINE) [Concomitant]
     Active Substance: TIZANIDINE
  10. SALBUTAMOL SULFATE/IPRATROPIUM BROMIDE [Concomitant]
     Dosage: 2 PUFFS 3 TO 4 TIMES DAILY
  11. METOCLOPRAMIDE. [Concomitant]
     Active Substance: METOCLOPRAMIDE
  12. NITROSTAT [Concomitant]
     Active Substance: NITROGLYCERIN
     Route: 060
  13. PROMETHAZINE [Concomitant]
     Active Substance: PROMETHAZINE\PROMETHAZINE HYDROCHLORIDE
  14. TEMAZEPAM. [Concomitant]
     Active Substance: TEMAZEPAM
  15. HYDROXYZINE PAMOATE. [Concomitant]
     Active Substance: HYDROXYZINE PAMOATE
  16. ERGOCALCIFEROL. [Concomitant]
     Active Substance: ERGOCALCIFEROL
  17. METHADONE [Concomitant]
     Active Substance: METHADONE HYDROCHLORIDE
  18. METOPROLOL SUCCINATE. [Concomitant]
     Active Substance: METOPROLOL SUCCINATE
  19. TESTIM [Concomitant]
     Active Substance: TESTOSTERONE
     Dosage: 2 TUBES
  20. ATORVASTATIN [Concomitant]
     Active Substance: ATORVASTATIN
  21. LEVOTHYROXINE [Concomitant]
     Active Substance: LEVOTHYROXINE
  22. LISINOPRIL. [Concomitant]
     Active Substance: LISINOPRIL
  23. TRAZODONE [Concomitant]
     Active Substance: TRAZODONE HYDROCHLORIDE

REACTIONS (1)
  - Blood testosterone decreased [Unknown]
